FAERS Safety Report 8863280 (Version 1)
Quarter: 2012Q4

REPORT INFORMATION
  Report Type: 
  Country: TR (occurrence: TR)
  Receive Date: 20121025
  Receipt Date: 20121025
  Transmission Date: 20130627
  Serious: Yes (Hospitalization)
  Sender: FDA-Public Use
  Company Number: TR-ROCHE-1134999

PATIENT
  Sex: Male

DRUGS (1)
  1. PEG-INTERFERON ALFA 2A [Suspect]
     Indication: HEPATITIS B
     Route: 058

REACTIONS (1)
  - Hepatitis B [Not Recovered/Not Resolved]
